FAERS Safety Report 6298036-1 (Version None)
Quarter: 2009Q3

REPORT INFORMATION
  Report Type: 
  Country: None (occurrence: None)
  Receive Date: 20090805
  Receipt Date: 20090724
  Transmission Date: 20100115
  Serious: Yes (Hospitalization)
  Sender: FDA-Public Use
  Company Number: BE-ELI_LILLY_AND_COMPANY-BE200907005671

PATIENT
  Sex: Male
  Weight: 78.3 kg

DRUGS (13)
  1. PEMETREXED [Suspect]
     Indication: NON-SMALL CELL LUNG CANCER STAGE III
     Dosage: 500 MG/M2, EVERY 3 WEEKS
     Route: 042
     Dates: start: 20090525
  2. CISPLATIN [Suspect]
     Indication: NON-SMALL CELL LUNG CANCER STAGE III
     Dosage: 75 MG/M2, EVERY 3 WEEKS
     Route: 042
     Dates: start: 20090525
  3. RADIATION [Suspect]
     Indication: NON-SMALL CELL LUNG CANCER STAGE III
     Dosage: 2 GY X33, UNK
     Dates: start: 20090528
  4. FOLIC ACID [Concomitant]
     Indication: PROPHYLAXIS
     Dates: start: 20090519
  5. VIT B12 [Concomitant]
     Indication: PROPHYLAXIS
     Dates: start: 20090706, end: 20090706
  6. MEDROL [Concomitant]
     Indication: PROPHYLAXIS
     Dosage: 24 MG, UNK
     Dates: start: 20090705, end: 20090707
  7. MEDROL [Concomitant]
     Dosage: 16 MG, UNK
     Dates: start: 20090708, end: 20090709
  8. SOLU-MEDROL [Concomitant]
     Indication: PROPHYLAXIS
     Dosage: 80 MG, UNK
     Dates: start: 20090706, end: 20090706
  9. AUGMENTIN /00852501/ [Concomitant]
     Indication: PNEUMONIA
     Dates: start: 20090720, end: 20090724
  10. ASAFLOW [Concomitant]
     Indication: PROPHYLAXIS
     Dates: start: 20040505
  11. TENORMIN [Concomitant]
     Indication: PROPHYLAXIS
     Dates: start: 20040101
  12. CRESTOR [Concomitant]
     Indication: HYPERCHOLESTEROLAEMIA
     Dates: start: 20040101
  13. ACEDICON [Concomitant]
     Indication: COUGH

REACTIONS (1)
  - PNEUMONIA [None]
